FAERS Safety Report 4651270-6 (Version None)
Quarter: 2005Q2

REPORT INFORMATION
  Report Type: 
  Country: None (occurrence: None)
  Receive Date: 20050331
  Receipt Date: 20050127
  Transmission Date: 20051028
  Serious: No
  Sender: FDA-Public Use
  Company Number: 05P-163-0288818-00

PATIENT
  Age: 66 Year
  Sex: Female
  Weight: 87.9978 kg

DRUGS (11)
  1. HUMIRA [Suspect]
     Indication: RHEUMATOID ARTHRITIS
     Dosage: 40 MG, 1 IN 2 WK, SUBCUTANEOUS
     Route: 058
     Dates: start: 20041201
  2. METHOTREXATE SODIUM [Concomitant]
  3. ROSIGLITAZONE MALEATE [Concomitant]
  4. GLIBOMET [Concomitant]
  5. FLUROSIMIDE [Concomitant]
  6. LISINOPRIL [Concomitant]
  7. LESCOL XL [Concomitant]
  8. ALENDRONATE SODIUM [Concomitant]
  9. ASPIRIN [Concomitant]
  10. MULTIVITAMIN [Concomitant]
  11. FOLIC ACID [Concomitant]

REACTIONS (1)
  - INJECTION SITE IRRITATION [None]
